FAERS Safety Report 5415184-6 (Version None)
Quarter: 2007Q3

REPORT INFORMATION
  Report Type: 
  Country: None (occurrence: None)
  Receive Date: 20070815
  Receipt Date: 20070711
  Transmission Date: 20080115
  Serious: No
  Sender: FDA-Public Use
  Company Number: A0664070A

PATIENT
  Age: 75 Year
  Sex: Female

DRUGS (4)
  1. COREG CR [Suspect]
     Indication: DRUG USE FOR UNKNOWN INDICATION
     Dosage: 40MG PER DAY
     Route: 048
     Dates: start: 20070710
  2. COREG [Suspect]
     Indication: DRUG USE FOR UNKNOWN INDICATION
     Route: 048
  3. SPIRONOLACTONE [Concomitant]
  4. PLAVIX [Concomitant]

REACTIONS (2)
  - SOMNOLENCE [None]
  - WEIGHT INCREASED [None]
